FAERS Safety Report 16220023 (Version 1)
Quarter: 2019Q2

REPORT INFORMATION
  Report Type: Spontaneous
  Country: US (occurrence: US)
  Receive Date: 20190420
  Receipt Date: 20190420
  Transmission Date: 20190711
  Serious: No
  Sender: FDA-Public Use
  Company Number: US-TEVA-2019-US-1030921

PATIENT
  Sex: Female

DRUGS (1)
  1. METOPROLOL SUCCINATE ER TABLET [Suspect]
     Active Substance: METOPROLOL SUCCINATE
     Indication: BLOOD PRESSURE INCREASED
     Dosage: EXTENDED RELEASE TABLET
     Route: 065
     Dates: start: 201812

REACTIONS (3)
  - Joint swelling [Unknown]
  - Oedema peripheral [Unknown]
  - Joint injury [Unknown]

NARRATIVE: CASE EVENT DATE: 201903
